FAERS Safety Report 12317782 (Version 2)
Quarter: 2016Q2

REPORT INFORMATION
  Report Type: Spontaneous
  Country: US (occurrence: US)
  Receive Date: 20160429
  Receipt Date: 20160525
  Transmission Date: 20160815
  Serious: Yes (Hospitalization)
  Sender: FDA-Public Use
  Company Number: US-009507513-1604USA016731

PATIENT
  Age: 86 Year
  Sex: Female
  Weight: 79 kg

DRUGS (18)
  1. TORADOL [Concomitant]
     Active Substance: KETOROLAC TROMETHAMINE
  2. TOPROL XL [Concomitant]
     Active Substance: METOPROLOL SUCCINATE
  3. XANAX [Concomitant]
     Active Substance: ALPRAZOLAM
  4. PAMELOR [Concomitant]
     Active Substance: NORTRIPTYLINE HYDROCHLORIDE
  5. GLIMEPIRIDE. [Suspect]
     Active Substance: GLIMEPIRIDE
     Dosage: 2 MG DAILY
     Route: 048
  6. VITAMIN D [Concomitant]
     Active Substance: CHOLECALCIFEROL
  7. JANUVIA [Suspect]
     Active Substance: SITAGLIPTIN PHOSPHATE
     Dosage: 50 MG, QD
     Route: 048
  8. LEVEMIR [Suspect]
     Active Substance: INSULIN DETEMIR
     Dosage: 20 UNITS DAILY
     Route: 058
  9. MACRODANTIN [Concomitant]
     Active Substance: NITROFURANTOIN
  10. PRILOSEC [Concomitant]
     Active Substance: OMEPRAZOLE MAGNESIUM
  11. BENADRYL [Concomitant]
     Active Substance: DIPHENHYDRAMINE HYDROCHLORIDE
  12. ULTRAM [Concomitant]
     Active Substance: TRAMADOL HYDROCHLORIDE
  13. LEVEMIR [Suspect]
     Active Substance: INSULIN DETEMIR
     Indication: DIABETES MELLITUS
     Dosage: 22 UNITS, QAM
     Route: 058
  14. HUMULIN NOS [Suspect]
     Active Substance: INSULIN HUMAN
     Indication: DIABETES MELLITUS
     Dosage: SLIDING SCALE INSULIN (SSI), BEFORE A MEAL (REPORTED AS ^AC^)
     Route: 058
  15. GLUCAGEN [Concomitant]
     Active Substance: GLUCAGON HYDROCHLORIDE
  16. APAP [Concomitant]
     Active Substance: ACETAMINOPHEN
  17. PLETAL [Concomitant]
     Active Substance: CILOSTAZOL
  18. GLUCOPHAGE [Concomitant]
     Active Substance: METFORMIN HYDROCHLORIDE

REACTIONS (1)
  - Hypoglycaemia [Recovered/Resolved]

NARRATIVE: CASE EVENT DATE: 20141128
